FAERS Safety Report 8859321 (Version 1)
Quarter: 2012Q4

REPORT INFORMATION
  Report Type: 
  Country: US (occurrence: US)
  Receive Date: 20121024
  Receipt Date: 20121024
  Transmission Date: 20130627
  Serious: No
  Sender: FDA-Public Use
  Company Number: US-ASTRAZENECA-2012SE26050

PATIENT
  Age: 59 Year
  Sex: Female
  Weight: 88.5 kg

DRUGS (7)
  1. METOPROLOL SUCCINATE [Suspect]
     Indication: ATRIAL TACHYCARDIA
     Route: 048
  2. LEVOTHRYOXINE [Concomitant]
  3. PREDNISONE [Concomitant]
     Indication: ARTHRITIS
  4. MULTIVITAMINS [Concomitant]
  5. ESTRADIOL [Concomitant]
  6. CLARITIN [Concomitant]
     Indication: HOUSE DUST ALLERGY
  7. CLARITIN [Concomitant]
     Indication: SEASONAL ALLERGY

REACTIONS (2)
  - Arthritis [Unknown]
  - Coeliac disease [Unknown]
